FAERS Safety Report 6687907 (Version 1)
Quarter: 2020Q3

REPORT INFORMATION
  Report Type: Report from Study
  Country: DE (occurrence: DE)
  Receive Date: 20080701
  Receipt Date: 20080701
  Transmission Date: 20201105
  Serious: Yes (Death, Other)
  Sender: FDA-Public Use
  Company Number: HQWYE322121JUN06

PATIENT
  Age: 58 Year
  Sex: Male
  Weight: 105 kg

DRUGS (16)
  1. PANTOPRAZOLE SODIUM. [Concomitant]
     Active Substance: PANTOPRAZOLE SODIUM
  2. CALCIUM [Concomitant]
     Active Substance: CALCIUM
  3. CYCLOSPORINE. [Suspect]
     Active Substance: CYCLOSPORINE
     Indication: PROPHYLAXIS AGAINST TRANSPLANT REJECTION
     Route: 065
     Dates: start: 20040202, end: 200603
  4. ALLOPURINOL. [Concomitant]
     Active Substance: ALLOPURINOL
  5. FUROSEMIDE. [Concomitant]
     Active Substance: FUROSEMIDE
  6. IPRATROPIUM BROMIDE. [Concomitant]
     Active Substance: IPRATROPIUM BROMIDE
  7. ENALAPRIL [Concomitant]
     Active Substance: ENALAPRIL
  8. ACETYLCYSTEINE. [Concomitant]
     Active Substance: ACETYLCYSTEINE
  9. CALCITRIOL. [Concomitant]
     Active Substance: CALCITRIOL
  10. INSULIN HUMAN NOS [Concomitant]
     Active Substance: INSULIN HUMAN
  11. PREDNISONE. [Concomitant]
     Active Substance: PREDNISONE
  12. LEVOTHYROXINE SODIUM. [Concomitant]
     Active Substance: LEVOTHYROXINE SODIUM
  13. FENOTEROL [Concomitant]
     Active Substance: FENOTEROL
  14. MAGNESIUM [Concomitant]
     Active Substance: MAGNESIUM
  15. ATORVASTATIN [Concomitant]
     Active Substance: ATORVASTATIN
  16. SALICYLIC ACID. [Concomitant]
     Active Substance: SALICYLIC ACID

REACTIONS (1)
  - Small cell lung cancer metastatic [Not Recovered/Not Resolved]

NARRATIVE: CASE EVENT DATE: 20060407
